FAERS Safety Report 4484645-9 (Version None)
Quarter: 2004Q3

REPORT INFORMATION
  Report Type: 
  Country: None (occurrence: None)
  Receive Date: 20040921
  Receipt Date: 20031111
  Transmission Date: 20050211
  Serious: Yes (Hospitalization)
  Sender: FDA-Public Use
  Company Number: 163-20785-03110256

PATIENT
  Age: 48 Year
  Sex: Male
  Weight: 80.7403 kg

DRUGS (15)
  1. THALOMID [Suspect]
     Indication: HEPATIC NEOPLASM MALIGNANT
     Dosage: 200 MG, DAILY, ORAL
     Route: 048
     Dates: start: 20031028, end: 20031111
  2. EPIRUBICIN [Suspect]
     Indication: HEPATIC NEOPLASM MALIGNANT
     Dosage: 20 MG/M2, WEEKLY, INTRAVENOUS
     Route: 042
     Dates: start: 20031028, end: 20031111
  3. ALDACTONE [Concomitant]
  4. ATIVAN [Concomitant]
  5. COLACE (DOCUSATE SODIUM) [Concomitant]
  6. COMPAZINE [Concomitant]
  7. DULCOLAX (BISACODYL) (SUPPOSITORY) [Concomitant]
  8. LACTULOSE [Concomitant]
  9. LOPRESSOR [Concomitant]
  10. MS CONTIN [Concomitant]
  11. MORPHINE SULFATE [Concomitant]
  12. NEXIUM [Concomitant]
  13. SENNA (SENNA) [Concomitant]
  14. THORAZINE [Concomitant]
  15. ZOFRAN [Concomitant]

REACTIONS (3)
  - ABDOMINAL PAIN [None]
  - CHEST PAIN [None]
  - CONSTIPATION [None]
